FAERS Safety Report 9120084 (Version 1)
Quarter: 2013Q1

REPORT INFORMATION
  Report Type: Spontaneous
  Country: US (occurrence: US)
  Receive Date: 20130226
  Receipt Date: 20130226
  Transmission Date: 20140127
  Serious: No
  Sender: FDA-Public Use
  Company Number: US-ASTRAZENECA-2013SE09620

PATIENT
  Sex: Female
  Weight: 74.8 kg

DRUGS (5)
  1. CRESTOR [Suspect]
     Route: 048
  2. MULTI VITAMINS [Concomitant]
  3. TOPAMAX [Concomitant]
  4. WARFARIN [Concomitant]
     Indication: CARDIOVASCULAR DISORDER
  5. LIPITOR [Concomitant]

REACTIONS (3)
  - Pain in extremity [Unknown]
  - Myalgia [Not Recovered/Not Resolved]
  - Off label use [Unknown]
